FAERS Safety Report 12318447 (Version 2)
Quarter: 2016Q3

REPORT INFORMATION
  Report Type: Spontaneous
  Country: US (occurrence: US)
  Receive Date: 20160429
  Receipt Date: 20160718
  Transmission Date: 20161109
  Serious: Yes (Hospitalization, Disabling, Other)
  Sender: FDA-Public Use
  Company Number: US-PFIZER INC-2016231677

PATIENT
  Age: 34 Year
  Sex: Male

DRUGS (2)
  1. DEPO-TESTOSTERONE [Suspect]
     Active Substance: TESTOSTERONE CYPIONATE
     Dosage: UNK, WEEKLY (3/4 CC ONCE WEEKLY)
     Dates: start: 20120627, end: 20120817
  2. DEPO-TESTOSTERONE [Suspect]
     Active Substance: TESTOSTERONE CYPIONATE
     Indication: HORMONE REPLACEMENT THERAPY
     Dosage: UNK
     Dates: start: 20120627, end: 20120917

REACTIONS (7)
  - Myocardial infarction [Unknown]
  - Pneumonia [Unknown]
  - Haemoptysis [Unknown]
  - Respiratory failure [Unknown]
  - Chordae tendinae rupture [Unknown]
  - Activities of daily living impaired [Not Recovered/Not Resolved]
  - Heat exhaustion [Not Recovered/Not Resolved]

NARRATIVE: CASE EVENT DATE: 201209
